FAERS Safety Report 12677686 (Version 1)
Quarter: 2016Q3

REPORT INFORMATION
  Report Type: Report from Study
  Country: CA (occurrence: CA)
  Receive Date: 20160823
  Receipt Date: 20160823
  Transmission Date: 20161109
  Serious: Yes (Hospitalization, Other)
  Sender: FDA-Public Use
  Company Number: CA-JNJFOC-20160529506

PATIENT
  Age: 32 Year
  Sex: Female
  Weight: 88 kg

DRUGS (32)
  1. OSTOFORTE [Concomitant]
     Dosage: STRENGTH: 50000 IU.ONCE IN A WEEK (FRIDAY MORNING)
     Route: 065
  2. ACETAMINOPHEN. [Concomitant]
     Active Substance: ACETAMINOPHEN
     Dosage: EX-STRENGTH; FREQUENCY: 1-2 AS NECESSARY
     Route: 065
  3. ASPIRIN. [Concomitant]
     Active Substance: ASPIRIN
     Dosage: ENTERIC COATED ASPIRIN
     Route: 065
  4. LIPITOR [Concomitant]
     Active Substance: ATORVASTATIN CALCIUM
     Route: 065
  5. SOLU-CORTEF [Concomitant]
     Active Substance: HYDROCORTISONE SODIUM SUCCINATE
     Indication: PREMEDICATION
     Route: 042
  6. NORITATE [Concomitant]
     Active Substance: METRONIDAZOLE
     Route: 061
  7. DILAUDID [Concomitant]
     Active Substance: HYDROMORPHONE HYDROCHLORIDE
     Dosage: THRICE A DAY OR AS NECESSARY
     Route: 065
  8. NITROGEN. [Concomitant]
     Active Substance: NITROGEN
     Route: 065
  9. BUSCOPAN [Concomitant]
     Active Substance: BUTYLSCOPOLAMINE BROMIDE
     Dosage: AS NECESSARY
     Route: 065
  10. ACETYLSALICYLIC ACID [Concomitant]
     Active Substance: ASPIRIN
     Route: 065
  11. SYMBICORT [Concomitant]
     Active Substance: BUDESONIDE\FORMOTEROL FUMARATE DIHYDRATE
     Dosage: 200/6 UG - 2 PUFS DAILY (AM) AND AS NECESSARY
     Route: 065
  12. SYSTANE ULTRA [Concomitant]
     Active Substance: POLYETHYLENE GLYCOL 400\PROPYLENE GLYCOL
     Route: 065
  13. EPIPEN [Concomitant]
     Active Substance: EPINEPHRINE
     Dosage: CARRY TWO AS NECESSARY
     Route: 065
  14. LYRICA [Concomitant]
     Active Substance: PREGABALIN
     Route: 065
  15. BENADRYL [Concomitant]
     Active Substance: DIPHENHYDRAMINE HYDROCHLORIDE
     Route: 065
  16. ATENOLOL. [Concomitant]
     Active Substance: ATENOLOL
     Dosage: FREQUENCY: 2 NIGHTLY
     Route: 065
  17. ZOMIG [Concomitant]
     Active Substance: ZOLMITRIPTAN
     Route: 065
  18. MAXERAN [Concomitant]
     Active Substance: METOCLOPRAMIDE HYDROCHLORIDE
     Dosage: (EVERY 6 HOURS) PRN
     Route: 065
  19. LIDOCAINE. [Concomitant]
     Active Substance: LIDOCAINE
     Indication: FISTULA
     Dosage: WITH NIFEDIPINE AND VASELINE
     Route: 065
  20. PREVACID [Concomitant]
     Active Substance: LANSOPRAZOLE
     Route: 065
  21. SALOFALK GR [Concomitant]
  22. GRAVOL [Concomitant]
     Active Substance: DIMENHYDRINATE
     Dosage: GRAVOL GINGER 1-2 (25 MG AS NECESSARY)
     Route: 065
  23. CYCLOBENZAPRINE [Concomitant]
     Active Substance: CYCLOBENZAPRINE
     Route: 065
  24. MOTILIUM [Concomitant]
     Active Substance: DOMPERIDONE
     Dosage: 1/2 HOUR BEFORE MEAL AND BEDTIME
     Route: 065
  25. REMICADE [Suspect]
     Active Substance: INFLIXIMAB
     Indication: CROHN^S DISEASE
     Route: 042
     Dates: start: 20050519
  26. HYDROMORPH CONTIN [Concomitant]
     Active Substance: HYDROMORPHONE
     Dosage: 6 MG MORNING AND 6 MG NIGHT
     Route: 065
  27. CIPRO [Concomitant]
     Active Substance: CIPROFLOXACIN HYDROCHLORIDE
     Route: 065
  28. CITALOPRAM [Concomitant]
     Active Substance: CITALOPRAM HYDROBROMIDE
     Route: 065
  29. KENALOG ORABASE [Concomitant]
     Route: 065
  30. NIFEDIPINE. [Concomitant]
     Active Substance: NIFEDIPINE
     Indication: FISTULA
     Dosage: WITH LIDOCAINE AND VASELINE
     Route: 065
  31. METRONIDAZOLE. [Concomitant]
     Active Substance: METRONIDAZOLE
     Route: 065
  32. CENTRUM FORTE [Concomitant]
     Route: 065

REACTIONS (3)
  - Product use issue [Unknown]
  - Pneumonia [Recovered/Resolved]
  - Off label use [Unknown]

NARRATIVE: CASE EVENT DATE: 20050519
